FAERS Safety Report 20382121 (Version 1)
Quarter: 2022Q1

REPORT INFORMATION
  Report Type: Spontaneous
  Country: US (occurrence: US)
  Receive Date: 20220127
  Receipt Date: 20220127
  Transmission Date: 20220423
  Serious: No
  Sender: FDA-Public Use
  Company Number: US-PERRIGO-20US018347

PATIENT
  Age: 50 Year
  Sex: Female
  Weight: 49.89 kg

DRUGS (4)
  1. OMEPRAZOLE [Suspect]
     Active Substance: OMEPRAZOLE
     Indication: Dyspepsia
     Dosage: 20 MG, QD
     Route: 050
     Dates: start: 20201218, end: 20201222
  2. OMEPRAZOLE [Suspect]
     Active Substance: OMEPRAZOLE
     Indication: Dyspepsia
     Dosage: 20 MG, QD
     Route: 050
     Dates: start: 20201110, end: 20201123
  3. MAGNESIUM [Concomitant]
     Active Substance: MAGNESIUM
     Indication: Supplementation therapy
     Dosage: UNK
     Route: 065
     Dates: start: 2019
  4. VITAMIN D NOS [Concomitant]
     Active Substance: VITAMIN D NOS
     Indication: Supplementation therapy
     Dosage: UNK
     Route: 065
     Dates: start: 2019

REACTIONS (6)
  - Abdominal pain [Not Recovered/Not Resolved]
  - Rebound effect [Unknown]
  - Frequent bowel movements [Not Recovered/Not Resolved]
  - Inappropriate schedule of product administration [Recovered/Resolved]
  - Faeces soft [Not Recovered/Not Resolved]
  - Allergic reaction to excipient [Not Recovered/Not Resolved]

NARRATIVE: CASE EVENT DATE: 20201201
